FAERS Safety Report 4941439-5 (Version None)
Quarter: 2006Q1

REPORT INFORMATION
  Report Type: 
  Country: None (occurrence: None)
  Receive Date: 20060313
  Receipt Date: 20060215
  Transmission Date: 20060701
  Serious: Yes (Hospitalization, Other)
  Sender: FDA-Public Use
  Company Number: JP-MERCK-0602USA05134

PATIENT
  Age: 53 Year
  Sex: Female

DRUGS (4)
  1. PEPCID RPD [Suspect]
     Indication: PROPHYLAXIS AGAINST GASTROINTESTINAL ULCER
     Route: 048
     Dates: start: 20051114, end: 20060127
  2. COTRIM [Concomitant]
     Indication: INFECTION PROPHYLAXIS
     Route: 048
     Dates: start: 20060125
  3. PREDONINE [Concomitant]
     Indication: DERMATOMYOSITIS
     Route: 048
     Dates: start: 20060122
  4. ALFAROL [Concomitant]
     Indication: OSTEOPOROSIS PROPHYLAXIS
     Route: 048
     Dates: start: 20060118

REACTIONS (3)
  - GASTRITIS [None]
  - INTERSTITIAL LUNG DISEASE [None]
  - PANCYTOPENIA [None]
